FAERS Safety Report 7562030-0 (Version None)
Quarter: 2011Q2

REPORT INFORMATION
  Report Type: 
  Country: None (occurrence: None)
  Receive Date: 20110622
  Receipt Date: 20031126
  Transmission Date: 20111010
  Serious: Yes (Other)
  Sender: FDA-Public Use
  Company Number: PHHO2003JP16857

PATIENT
  Sex: Female

DRUGS (5)
  1. LOCHOLEST [Suspect]
     Indication: HYPERCHOLESTEROLAEMIA
     Dosage: 20 MG/DAY
     Route: 048
     Dates: start: 20011025
  2. LOXONIN [Concomitant]
     Dosage: UNK
  3. ONE-ALPHA [Concomitant]
     Dosage: UNK
  4. DIOVAN [Concomitant]
     Dosage: UNK
  5. PERDIPINE-LA [Concomitant]
     Dosage: UNK

REACTIONS (1)
  - GASTRITIS [None]
